FAERS Safety Report 11898046 (Version 1)
Quarter: 2016Q1

REPORT INFORMATION
  Report Type: Spontaneous
  Country: IT (occurrence: IT)
  Receive Date: 20160108
  Receipt Date: 20160108
  Transmission Date: 20160526
  Serious: Yes (Hospitalization)
  Sender: FDA-Public Use
  Company Number: IT-ROCHE-1691100

PATIENT
  Age: 80 Year
  Sex: Male

DRUGS (1)
  1. MABTHERA [Suspect]
     Active Substance: RITUXIMAB
     Indication: CHRONIC LYMPHOCYTIC LEUKAEMIA
     Route: 042
     Dates: start: 20150702, end: 20150702

REACTIONS (4)
  - Hyperhidrosis [Recovered/Resolved]
  - Retching [Recovered/Resolved]
  - Loss of consciousness [Recovered/Resolved]
  - Anal sphincter atony [Recovered/Resolved]

NARRATIVE: CASE EVENT DATE: 20150702
